FAERS Safety Report 6656372-0 (Version None)
Quarter: 2010Q1

REPORT INFORMATION
  Report Type: 
  Country: None (occurrence: None)
  Receive Date: 20100317
  Receipt Date: 20091130
  Transmission Date: 20100710
  Serious: No
  Sender: FDA-Public Use
  Company Number: DSA_42108_2009

PATIENT
  Sex: Male

DRUGS (5)
  1. XENAZINE [Suspect]
     Indication: HUNTINGTON'S CHOREA
     Dosage: (12.5 MG BID ORAL)
     Route: 048
     Dates: start: 20091007
  2. ATIVAN [Concomitant]
  3. GLIPIZIDE [Concomitant]
  4. LEXAPRO [Concomitant]
  5. DOCUSATE CALCIUM [Concomitant]

REACTIONS (1)
  - POLLAKIURIA [None]
